FAERS Safety Report 23458913 (Version 1)
Quarter: 2024Q1

REPORT INFORMATION
  Report Type: Report from Study
  Country: US (occurrence: US)
  Receive Date: 20240131
  Receipt Date: 20240131
  Transmission Date: 20240410
  Serious: Yes (Hospitalization)
  Sender: FDA-Public Use
  Company Number: US-ABBVIE-5603987

PATIENT
  Age: 57 Year
  Sex: Female

DRUGS (1)
  1. CREON [Suspect]
     Active Substance: PANCRELIPASE AMYLASE\PANCRELIPASE LIPASE\PANCRELIPASE PROTEASE
     Indication: Product used for unknown indication
     Dosage: FORM STRENGTH: 36000 UNIT?2 CAPSULES WITH EACH MEALS AND 1 CAPSULE WITH EACH SNACK
     Route: 048
     Dates: start: 202401

REACTIONS (1)
  - Ostomy bag placement [Unknown]

NARRATIVE: CASE EVENT DATE: 20240101
